FAERS Safety Report 5247225-3 (Version None)
Quarter: 2007Q1

REPORT INFORMATION
  Report Type: 
  Country: None (occurrence: None)
  Receive Date: 20070220
  Receipt Date: 20070208
  Transmission Date: 20070707
  Serious: Yes (Other)
  Sender: FDA-Public Use
  Company Number: OSCN-PR-0702L-0067

PATIENT
  Age: 23 Year
  Sex: Female

DRUGS (41)
  1. OMNISCAN [Suspect]
     Indication: CATHETER RELATED COMPLICATION
     Dosage: SEE IMAGE
     Route: 042
     Dates: start: 20030130, end: 20030130
  2. OMNISCAN [Suspect]
     Indication: HIP FRACTURE
     Dosage: SEE IMAGE
     Route: 042
     Dates: start: 20030130, end: 20030130
  3. OMNISCAN [Suspect]
     Indication: LOWER LIMB FRACTURE
     Dosage: SEE IMAGE
     Route: 042
     Dates: start: 20030130, end: 20030130
  4. OMNISCAN [Suspect]
     Indication: OSTEONECROSIS
     Dosage: SEE IMAGE
     Route: 042
     Dates: start: 20030130, end: 20030130
  5. OMNISCAN [Suspect]
     Indication: PELVIC FRACTURE
     Dosage: SEE IMAGE
     Route: 042
     Dates: start: 20030130, end: 20030130
  6. OMNISCAN [Suspect]
     Indication: CATHETER RELATED COMPLICATION
     Dosage: SEE IMAGE
     Route: 042
     Dates: start: 20030607, end: 20030607
  7. OMNISCAN [Suspect]
     Indication: HIP FRACTURE
     Dosage: SEE IMAGE
     Route: 042
     Dates: start: 20030607, end: 20030607
  8. OMNISCAN [Suspect]
     Indication: LOWER LIMB FRACTURE
     Dosage: SEE IMAGE
     Route: 042
     Dates: start: 20030607, end: 20030607
  9. OMNISCAN [Suspect]
     Indication: OSTEONECROSIS
     Dosage: SEE IMAGE
     Route: 042
     Dates: start: 20030607, end: 20030607
  10. OMNISCAN [Suspect]
     Indication: PELVIC FRACTURE
     Dosage: SEE IMAGE
     Route: 042
     Dates: start: 20030607, end: 20030607
  11. OMNISCAN [Suspect]
     Indication: CATHETER RELATED COMPLICATION
     Dosage: SEE IMAGE
     Route: 042
     Dates: start: 20030715, end: 20030715
  12. OMNISCAN [Suspect]
     Indication: HIP FRACTURE
     Dosage: SEE IMAGE
     Route: 042
     Dates: start: 20030715, end: 20030715
  13. OMNISCAN [Suspect]
     Indication: LOWER LIMB FRACTURE
     Dosage: SEE IMAGE
     Route: 042
     Dates: start: 20030715, end: 20030715
  14. OMNISCAN [Suspect]
     Indication: OSTEONECROSIS
     Dosage: SEE IMAGE
     Route: 042
     Dates: start: 20030715, end: 20030715
  15. OMNISCAN [Suspect]
     Indication: PELVIC FRACTURE
     Dosage: SEE IMAGE
     Route: 042
     Dates: start: 20030715, end: 20030715
  16. OMNISCAN [Suspect]
     Indication: CATHETER RELATED COMPLICATION
     Dosage: SEE IMAGE
     Route: 042
     Dates: start: 20030801, end: 20030801
  17. OMNISCAN [Suspect]
     Indication: HIP FRACTURE
     Dosage: SEE IMAGE
     Route: 042
     Dates: start: 20030801, end: 20030801
  18. OMNISCAN [Suspect]
     Indication: LOWER LIMB FRACTURE
     Dosage: SEE IMAGE
     Route: 042
     Dates: start: 20030801, end: 20030801
  19. OMNISCAN [Suspect]
     Indication: OSTEONECROSIS
     Dosage: SEE IMAGE
     Route: 042
     Dates: start: 20030801, end: 20030801
  20. OMNISCAN [Suspect]
     Indication: PELVIC FRACTURE
     Dosage: SEE IMAGE
     Route: 042
     Dates: start: 20030801, end: 20030801
  21. OMNISCAN [Suspect]
     Indication: CATHETER RELATED COMPLICATION
     Dosage: SEE IMAGE
     Route: 042
     Dates: start: 20031124, end: 20031124
  22. OMNISCAN [Suspect]
     Indication: HIP FRACTURE
     Dosage: SEE IMAGE
     Route: 042
     Dates: start: 20031124, end: 20031124
  23. OMNISCAN [Suspect]
     Indication: LOWER LIMB FRACTURE
     Dosage: SEE IMAGE
     Route: 042
     Dates: start: 20031124, end: 20031124
  24. OMNISCAN [Suspect]
     Indication: OSTEONECROSIS
     Dosage: SEE IMAGE
     Route: 042
     Dates: start: 20031124, end: 20031124
  25. OMNISCAN [Suspect]
     Indication: PELVIC FRACTURE
     Dosage: SEE IMAGE
     Route: 042
     Dates: start: 20031124, end: 20031124
  26. EPOGEN [Concomitant]
  27. SACCHARATED IRON OXIDE (VENOFER) [Concomitant]
  28. ASPIRIN [Concomitant]
  29. DOCUSATE SODIUM (COLACE) [Concomitant]
  30. NEPHROCAPS [Concomitant]
  31. CINACALCET [Concomitant]
  32. CYCLBENZAPRINE HYDROCHLORIDE (FLEXERIL) [Concomitant]
  33. RANITIDINE [Concomitant]
  34. GABAPENTIN [Concomitant]
  35. BENADRYL [Concomitant]
  36. SEVELAMER (RENAGEL) [Concomitant]
  37. PLAVIX [Concomitant]
  38. ATIVAN [Concomitant]
  39. ZOLOFT [Concomitant]
  40. FENTANYL [Concomitant]
  41. MORPHINE SULFATE (MSIR) [Concomitant]

REACTIONS (10)
  - BLOOD BICARBONATE INCREASED [None]
  - BLOOD PHOSPHORUS DECREASED [None]
  - BLOOD PHOSPHORUS INCREASED [None]
  - CATHETER RELATED INFECTION [None]
  - IRON BINDING CAPACITY TOTAL DECREASED [None]
  - LOWER LIMB FRACTURE [None]
  - NEPHROGENIC FIBROSING DERMOPATHY [None]
  - OSTEONECROSIS [None]
  - SEPTIC SHOCK [None]
  - SERUM FERRITIN INCREASED [None]
